FAERS Safety Report 4641792-6 (Version None)
Quarter: 2005Q2

REPORT INFORMATION
  Report Type: 
  Country: None (occurrence: None)
  Receive Date: 20050420
  Receipt Date: 20050406
  Transmission Date: 20051028
  Serious: Yes (Hospitalization, Other)
  Sender: FDA-Public Use
  Company Number: USA040363542

PATIENT
  Age: 82 Year
  Sex: Female
  Weight: 54 kg

DRUGS (8)
  1. FORTEO [Suspect]
     Indication: OSTEOPOROSIS
     Dosage: 20 UG /DAY
     Dates: start: 20040329, end: 20040818
  2. OSCAL (CALCIUM CARBONATE) [Concomitant]
  3. MULTIVITAMIN [Concomitant]
  4. LIPITOR [Concomitant]
  5. DYNACIRC [Concomitant]
  6. TRIAMTERENE [Concomitant]
  7. GLUCOSAMINE CHONDROITIN [Concomitant]
  8. THIAZIDE DIURETIC [Concomitant]

REACTIONS (16)
  - ARTHRALGIA [None]
  - ASTHENIA [None]
  - BACK PAIN [None]
  - BURSITIS [None]
  - DRY SKIN [None]
  - FATIGUE [None]
  - GOITRE [None]
  - HYPERCALCAEMIA [None]
  - HYPERPARATHYROIDISM [None]
  - INJECTION SITE ERYTHEMA [None]
  - JOINT STIFFNESS [None]
  - NOCTURIA [None]
  - PAIN [None]
  - PARATHYROID TUMOUR BENIGN [None]
  - PHARMACEUTICAL PRODUCT COMPLAINT [None]
  - PRURITUS [None]
